APPROVED DRUG PRODUCT: TYLENOL W/ CODEINE NO. 4
Active Ingredient: ACETAMINOPHEN; CODEINE PHOSPHATE
Strength: 300MG;60MG
Dosage Form/Route: CAPSULE;ORAL
Application: A087421 | Product #001
Applicant: ORTHO MCNEIL PHARMACEUTICAL INC
Approved: Approved Prior to Jan 1, 1982 | RLD: No | RS: No | Type: DISCN